FAERS Safety Report 16964657 (Version 1)
Quarter: 2019Q4

REPORT INFORMATION
  Report Type: Spontaneous
  Country: IL (occurrence: IL)
  Receive Date: 20191028
  Receipt Date: 20191028
  Transmission Date: 20200122
  Serious: Yes (Hospitalization)
  Sender: FDA-Public Use
  Company Number: IL-TEVA-2019-IL-1128969

PATIENT
  Age: 80 Year
  Sex: Male

DRUGS (2)
  1. FUSID (FUROSEMIDE) [Suspect]
     Active Substance: FUROSEMIDE
     Indication: HYPERTENSION
     Route: 065
  2. EXFORGE [Concomitant]
     Active Substance: AMLODIPINE BESYLATE\VALSARTAN

REACTIONS (3)
  - Fall [Unknown]
  - Hyponatraemia [Unknown]
  - Asthenia [Unknown]
